FAERS Safety Report 5889210-4 (Version None)
Quarter: 2008Q3

REPORT INFORMATION
  Report Type: 
  Country: None (occurrence: None)
  Receive Date: 20080919
  Receipt Date: 20080917
  Transmission Date: 20090109
  Serious: Yes (Death, Other)
  Sender: FDA-Public Use
  Company Number: GB-BRISTOL-MYERS SQUIBB COMPANY-14097455

PATIENT
  Age: 69 Year
  Sex: Male

DRUGS (4)
  1. STAVUDINE [Suspect]
     Indication: HIV INFECTION
  2. INDINIVIR SULFATE [Suspect]
     Indication: HIV INFECTION
     Route: 048
  3. NEVIRAPINE [Suspect]
     Indication: HIV INFECTION
  4. RITONAVIR [Suspect]
     Indication: HIV INFECTION

REACTIONS (4)
  - MALIGNANT MELANOMA [None]
  - METASTASES TO LYMPH NODES [None]
  - METASTASES TO SKIN [None]
  - NEOPLASM MALIGNANT [None]
